FAERS Safety Report 5275822-8 (Version None)
Quarter: 2007Q1

REPORT INFORMATION
  Report Type: 
  Country: None (occurrence: None)
  Receive Date: 20070326
  Receipt Date: 20070320
  Transmission Date: 20070707
  Serious: Yes (Hospitalization)
  Sender: FDA-Public Use
  Company Number: FRWYE104120MAR07

PATIENT
  Sex: Female
  Weight: 39 kg

DRUGS (1)
  1. ADVIL [Suspect]
     Indication: JOINT SPRAIN
     Route: 048
     Dates: start: 20070202, end: 20070214

REACTIONS (4)
  - NASOPHARYNGITIS [None]
  - OSTEOMYELITIS [None]
  - PLATELET COUNT INCREASED [None]
  - VIRAL PHARYNGITIS [None]
